FAERS Safety Report 17760859 (Version 4)
Quarter: 2020Q2

REPORT INFORMATION
  Report Type: Spontaneous
  Country: US (occurrence: US)
  Receive Date: 20200508
  Receipt Date: 20200629
  Transmission Date: 20200714
  Serious: Yes (Hospitalization)
  Sender: FDA-Public Use
  Company Number: US-PFIZER INC-2020133135

PATIENT
  Age: 69 Year
  Sex: Male
  Weight: 93.44 kg

DRUGS (1)
  1. LORBRENA [Suspect]
     Active Substance: LORLATINIB
     Indication: LUNG CANCER METASTATIC
     Dosage: 100 MG, DAILY
     Route: 048
     Dates: start: 20200410, end: 2020

REACTIONS (4)
  - Disorientation [Unknown]
  - Memory impairment [Recovering/Resolving]
  - Pyrexia [Unknown]
  - Oxygen saturation decreased [Unknown]

NARRATIVE: CASE EVENT DATE: 2020
